FAERS Safety Report 25331045 (Version 1)
Quarter: 2025Q2

REPORT INFORMATION
  Report Type: Spontaneous
  Country: US (occurrence: None)
  Receive Date: 20250518
  Receipt Date: 20250518
  Transmission Date: 20250717
  Serious: Yes (Hospitalization)
  Sender: FDA-CTU
  Company Number: None

PATIENT
  Sex: Female

DRUGS (2)
  1. OPSUMIT [Suspect]
     Active Substance: MACITENTAN
     Indication: Pulmonary arterial hypertension
     Dosage: FREQUENCY : DAILY;?
     Route: 048
     Dates: start: 20241129
  2. UPTRAVI [Suspect]
     Active Substance: SELEXIPAG

REACTIONS (6)
  - Peripheral swelling [None]
  - Joint swelling [None]
  - Peripheral swelling [None]
  - Weight abnormal [None]
  - Norovirus infection [None]
  - Therapy cessation [None]
